FAERS Safety Report 9059987 (Version 1)
Quarter: 2013Q1

REPORT INFORMATION
  Report Type: Spontaneous
  Country: US (occurrence: None)
  Receive Date: 20130118
  Receipt Date: 20130118
  Transmission Date: 20140127
  Serious: Yes (Death)
  Sender: FDA-Public Use
  Company Number: TIR-01700

PATIENT
  Age: 15 Year
  Sex: Female

DRUGS (7)
  1. LEVOTHYROXINE [Suspect]
  2. METHADONE [Suspect]
  3. SERTRALINE [Suspect]
  4. BACLOFEN [Suspect]
  5. ONDANSETRON [Suspect]
  6. ACETAMINOPHEN / HYDROCODONE [Suspect]
  7. IBUPROFEN [Suspect]

REACTIONS (3)
  - Cardiac arrest [None]
  - Respiratory arrest [None]
  - Completed suicide [None]
